FAERS Safety Report 8372890-1 (Version None)
Quarter: 2012Q2

REPORT INFORMATION
  Report Type: 
  Country: None (occurrence: None)
  Receive Date: 20120521
  Receipt Date: 20120516
  Transmission Date: 20120825
  Serious: Yes (Death)
  Sender: FDA-Public Use
  Company Number: US-PFIZER INC-2012115628

PATIENT
  Sex: Male
  Weight: 68 kg

DRUGS (7)
  1. TAMSULOSIN HYDROCHLORIDE [Concomitant]
     Dosage: UNK
  2. METOPROLOL [Concomitant]
     Dosage: UNK
  3. AMLODIPINE [Concomitant]
     Dosage: UNK
  4. POTASSIUM [Concomitant]
     Dosage: UNK
  5. LOVASTATIN [Concomitant]
     Dosage: UNK
  6. SUTENT [Suspect]
     Indication: METASTATIC RENAL CELL CARCINOMA
     Dosage: 50 MG, 24/42 DAY CYCLE
     Dates: start: 20120418
  7. BENICAR [Concomitant]
     Dosage: UNK

REACTIONS (15)
  - DRY MOUTH [None]
  - MASTICATION DISORDER [None]
  - SEPTIC SHOCK [None]
  - PAIN [None]
  - WEIGHT DECREASED [None]
  - DECREASED APPETITE [None]
  - CHANGE OF BOWEL HABIT [None]
  - AGITATION [None]
  - DYSSTASIA [None]
  - DECREASED ACTIVITY [None]
  - FATIGUE [None]
  - DEPRESSED MOOD [None]
  - HYPOTENSION [None]
  - FEELING COLD [None]
  - INADEQUATE ANALGESIA [None]
